FAERS Safety Report 6187067-8 (Version None)
Quarter: 2009Q2

REPORT INFORMATION
  Report Type: 
  Country: None (occurrence: None)
  Receive Date: 20090512
  Receipt Date: 20081107
  Transmission Date: 20091009
  Serious: Yes (Other)
  Sender: FDA-Public Use
  Company Number: CN-PFIZER INC-2008095573

PATIENT
  Age: 76 Year

DRUGS (4)
  1. CEFOPERAZONE SODIUM, SULBACTAM SODIUM [Suspect]
     Indication: INFECTION
     Dosage: 3 G, 2X/DAY
     Route: 042
     Dates: end: 20040101
  2. METRONIDAZOLE [Concomitant]
     Dosage: UNK
     Route: 042
     Dates: end: 20040101
  3. ALL OTHER THERAPEUTIC PRODUCTS [Concomitant]
     Dosage: UNK
     Route: 042
     Dates: end: 20040101
  4. ALL OTHER THERAPEUTIC PRODUCTS [Concomitant]
     Route: 042
     Dates: end: 20040101

REACTIONS (3)
  - COAGULATION TEST ABNORMAL [None]
  - HAEMATURIA [None]
  - RENAL IMPAIRMENT [None]
